FAERS Safety Report 7604980-2 (Version None)
Quarter: 2011Q3

REPORT INFORMATION
  Report Type: 
  Country: None (occurrence: None)
  Receive Date: 20110713
  Receipt Date: 20110705
  Transmission Date: 20111222
  Serious: No
  Sender: FDA-Public Use
  Company Number: US-BIOGENIDEC-2011BI024903

PATIENT
  Sex: Male

DRUGS (2)
  1. AMPYRA [Concomitant]
     Route: 048
     Dates: start: 20110601
  2. TYSABRI [Suspect]
     Indication: MULTIPLE SCLEROSIS
     Route: 042
     Dates: start: 20080128

REACTIONS (2)
  - ANTIBODY TEST [None]
  - DRUG EFFECT DECREASED [None]
